FAERS Safety Report 8950272 (Version 1)
Quarter: 2012Q4

REPORT INFORMATION
  Report Type: 
  Country: CN (occurrence: CN)
  Receive Date: 20121205
  Receipt Date: 20121205
  Transmission Date: 20130627
  Serious: Yes (Hospitalization, Other)
  Sender: FDA-Public Use
  Company Number: PHHY2012CN110155

PATIENT
  Age: 7 Year
  Sex: Female
  Weight: 22 kg

DRUGS (1)
  1. TEGRETOL [Suspect]
     Indication: EPILEPSY
     Dosage: 0.2 g, BID
     Route: 048
     Dates: start: 20100514, end: 20100528

REACTIONS (4)
  - Herpes virus infection [Recovering/Resolving]
  - Rash generalised [Recovering/Resolving]
  - Rash macular [Recovering/Resolving]
  - Pruritus [Recovering/Resolving]
